FAERS Safety Report 23701407 (Version 1)
Quarter: 2024Q2

REPORT INFORMATION
  Report Type: Spontaneous
  Country: US (occurrence: None)
  Receive Date: 20240402
  Receipt Date: 20240402
  Transmission Date: 20240716
  Serious: No
  Sender: FDA-Public Use
  Company Number: None

PATIENT
  Age: 88 Year
  Sex: Male
  Weight: 72 kg

DRUGS (7)
  1. XTANDI [Suspect]
     Active Substance: ENZALUTAMIDE
     Indication: Prostate cancer
     Dosage: 160 MG DAILY ORAL?
     Route: 048
     Dates: start: 20240228, end: 20240305
  2. ELIQUIS [Concomitant]
     Active Substance: APIXABAN
  3. FLUDROCORTISONE [Concomitant]
     Active Substance: FLUDROCORTISONE
  4. FAMOTIDINE [Concomitant]
     Active Substance: FAMOTIDINE
  5. ATORVASTATIN [Concomitant]
     Active Substance: ATORVASTATIN
  6. DONEPEZIL [Concomitant]
     Active Substance: DONEPEZIL
  7. METOPROLOL SUCCINATE [Concomitant]
     Active Substance: METOPROLOL SUCCINATE

REACTIONS (1)
  - Cerebral infarction [None]

NARRATIVE: CASE EVENT DATE: 20240228
